FAERS Safety Report 5038669-3 (Version None)
Quarter: 2006Q2

REPORT INFORMATION
  Report Type: 
  Country: None (occurrence: None)
  Receive Date: 20060627
  Receipt Date: 20060627
  Transmission Date: 20061013
  Serious: Yes (Hospitalization)
  Sender: FDA-Public Use
  Company Number: None

PATIENT
  Sex: Female
  Weight: 47.27 kg

DRUGS (1)
  1. TOPOTECAN [Suspect]
     Dosage: 12 MG

REACTIONS (18)
  - ABASIA [None]
  - ANXIETY [None]
  - ASTHENIA [None]
  - BEDRIDDEN [None]
  - BLOOD CULTURE POSITIVE [None]
  - DECREASED APPETITE [None]
  - DEHYDRATION [None]
  - FATIGUE [None]
  - HAEMOGLOBIN DECREASED [None]
  - HYPOMAGNESAEMIA [None]
  - HYPONATRAEMIA [None]
  - LABORATORY TEST INTERFERENCE [None]
  - NAUSEA [None]
  - PERFORMANCE STATUS DECREASED [None]
  - PLATELET COUNT DECREASED [None]
  - PYREXIA [None]
  - URINARY TRACT INFECTION [None]
  - VOMITING [None]
